FAERS Safety Report 6970664-7 (Version None)
Quarter: 2010Q3

REPORT INFORMATION
  Report Type: 
  Country: None (occurrence: None)
  Receive Date: 20100908
  Receipt Date: 20100827
  Transmission Date: 20110219
  Serious: Yes (Disabling, Other)
  Sender: FDA-Public Use
  Company Number: US-PFIZER INC-2010052982

PATIENT
  Sex: Male

DRUGS (13)
  1. CHANTIX [Suspect]
     Indication: SMOKING CESSATION THERAPY
     Dosage: STARTER PACK
     Route: 048
     Dates: start: 20080301, end: 20080501
  2. ADVAIR DISKUS 100/50 [Concomitant]
     Indication: DYSPNOEA
     Dosage: UNK
     Dates: start: 20070101
  3. ADVAIR DISKUS 100/50 [Concomitant]
     Indication: BRONCHITIS
  4. AUGMENTIN '125' [Concomitant]
     Indication: ACUTE SINUSITIS
     Dosage: UNK
     Dates: start: 20060201, end: 20090101
  5. DIAZEPAM [Concomitant]
     Indication: MUSCLE SPASMS
     Dosage: UNK
     Dates: start: 20071201
  6. DIAZEPAM [Concomitant]
     Indication: INSOMNIA
  7. HYDROCODONE [Concomitant]
     Indication: PAIN
     Dosage: UNK
     Dates: start: 20060301
  8. LEVAQUIN [Concomitant]
     Indication: ANTIBIOTIC THERAPY
     Dosage: UNK
     Dates: start: 20070101, end: 20081001
  9. LEVITRA [Concomitant]
     Indication: ERECTILE DYSFUNCTION
     Dosage: UNK
     Dates: start: 20060101, end: 20080901
  10. PREDNISONE [Concomitant]
     Indication: CHRONIC OBSTRUCTIVE PULMONARY DISEASE
     Dosage: UNK
     Dates: start: 20031101, end: 20080901
  11. PREDNISONE [Concomitant]
     Indication: INTERVERTEBRAL DISC DISORDER
  12. PRILOSEC [Concomitant]
     Indication: GASTROOESOPHAGEAL REFLUX DISEASE
     Dosage: UNK
     Dates: start: 20071101, end: 20080501
  13. VICODIN [Concomitant]
     Indication: PAIN
     Dosage: UNK
     Dates: start: 20030801

REACTIONS (9)
  - ANGER [None]
  - ANXIETY [None]
  - DEPRESSION [None]
  - DIZZINESS [None]
  - FATIGUE [None]
  - LOSS OF CONSCIOUSNESS [None]
  - NAUSEA [None]
  - SUICIDAL IDEATION [None]
  - VOMITING [None]
